FAERS Safety Report 21005270 (Version 2)
Quarter: 2022Q3

REPORT INFORMATION
  Report Type: Spontaneous
  Country: US (occurrence: US)
  Receive Date: 20220624
  Receipt Date: 20220708
  Transmission Date: 20221026
  Serious: Yes (Hospitalization, Other)
  Sender: FDA-Public Use
  Company Number: US-PFIZER INC-PV202200006162

PATIENT
  Age: 61 Year
  Sex: Female
  Weight: 116 kg

DRUGS (28)
  1. LYRICA [Suspect]
     Active Substance: PREGABALIN
     Indication: Neuropathy peripheral
     Dosage: 200 MG, 3X/DAY
     Route: 048
  2. XTAMPZA ER [Suspect]
     Active Substance: OXYCODONE
     Indication: Pain
     Dosage: 27 MG, 2X/DAY
     Route: 048
     Dates: start: 20200609, end: 20220404
  3. XTAMPZA ER [Suspect]
     Active Substance: OXYCODONE
     Dosage: 27 MG, 3X/DAY
     Route: 048
     Dates: start: 20220419, end: 20220422
  4. NORCO [Suspect]
     Active Substance: ACETAMINOPHEN\HYDROCODONE BITARTRATE
     Indication: Dermoid cyst
     Dosage: 1-=325 MG, 1 TABLET EVERY 6 HOURS, AS NEEDED(ALSO REPORTED AS 2X/DAY)
     Route: 048
  5. NORCO [Suspect]
     Active Substance: ACETAMINOPHEN\HYDROCODONE BITARTRATE
     Indication: Pain
  6. ASPIRIN [Concomitant]
     Active Substance: ASPIRIN
     Dosage: 81 MG, 1X/DAY
     Route: 048
  7. LIPITOR [Concomitant]
     Active Substance: ATORVASTATIN CALCIUM
     Dosage: 80 MG, 1X/DAY
     Route: 048
  8. BUSPAR [Concomitant]
     Active Substance: BUSPIRONE HYDROCHLORIDE
     Dosage: 7.5 MG, 3X/DAY
     Route: 048
  9. TEMOVATE [Concomitant]
     Active Substance: CLOBETASOL PROPIONATE
     Dosage: APPLIED TOPICALLY TO AFFECTED AREA, 2X/DAY(AVOID FACE)
     Route: 061
  10. VITAMIN B12 [Concomitant]
     Active Substance: CYANOCOBALAMIN
     Dosage: 1000 UG, 1X/DAY
     Route: 048
  11. VOLTAREN [Concomitant]
     Active Substance: DICLOFENAC SODIUM
     Dosage: AFFECTED AREA, 2X/DAY, (AS NEEDED)
  12. DULAGLUTIDE [Concomitant]
     Active Substance: DULAGLUTIDE
     Dosage: 1.5 MG,(EVERY 7 DAYS) CYCLIC
  13. FERATAB [Concomitant]
     Dosage: 325 MG, 1X/DAY
     Route: 048
  14. PROZAC [Concomitant]
     Active Substance: FLUOXETINE HYDROCHLORIDE
     Dosage: 60 MG, DAILY
     Route: 048
  15. FLONASE [Concomitant]
     Active Substance: FLUTICASONE PROPIONATE
     Dosage: 100 UG (2 SPRAYS), 1X/DAY IN EACH NARE
     Route: 045
  16. LASIX [Concomitant]
     Active Substance: FUROSEMIDE
     Dosage: 20 MG, 1X/DAY,(AS NEEDED)
     Route: 048
  17. EMGALITY [Concomitant]
     Active Substance: GALCANEZUMAB-GNLM
     Dosage: 120 MG, MONTHLY
  18. NOVOLOG [Concomitant]
     Active Substance: INSULIN ASPART
     Dosage: 50 IU, 2X/DAY, (AS NEEDED)
  19. LISINOPRIL [Concomitant]
     Active Substance: LISINOPRIL
     Dosage: 2.5 MG, 1X/DAY
     Route: 048
  20. MAGNESIUM OXIDE [Concomitant]
     Active Substance: MAGNESIUM OXIDE
     Dosage: 800 MG, 1X/DAY
     Route: 048
  21. GLUCOPHAGE [Concomitant]
     Active Substance: METFORMIN HYDROCHLORIDE
     Dosage: 1000 MG, 2X/DAY WITH MEALS
     Route: 048
  22. MYCOSTATIN [Concomitant]
     Active Substance: NYSTATIN
     Dosage: UNK, (100,000) (2-3 TIMES DAILY)
     Route: 061
  23. NURTEC ODT [Concomitant]
     Active Substance: RIMEGEPANT SULFATE
     Dosage: 75 MG (TOP OF TONGUE, ALLOWED TO DISSOLVE THEN SWALLOWED ONCE) AS NEEDED
  24. VITAMIN E [Concomitant]
     Active Substance: .ALPHA.-TOCOPHEROL
     Dosage: 400 IU, 1X/DAY
     Route: 048
  25. XALATAN [Concomitant]
     Active Substance: LATANOPROST
     Dosage: UNK, (0.005 %), (BY MOUTH EVERY 6 HOURS)
     Dates: end: 20220424
  26. SEROQUEL [Concomitant]
     Active Substance: QUETIAPINE FUMARATE
     Dosage: 100 MG
  27. SEROQUEL [Concomitant]
     Active Substance: QUETIAPINE FUMARATE
     Dosage: 150 MG, 1X/DAY
  28. PROAIR HFA [Concomitant]
     Active Substance: ALBUTEROL SULFATE
     Dosage: 180 UG (2 PUFFS) INTO THE LUNGS EVERY 4 HOURS AS NEEDED

REACTIONS (10)
  - Acute kidney injury [Recovered/Resolved]
  - Encephalopathy [Recovered/Resolved]
  - Pulmonary congestion [Recovered/Resolved]
  - Unresponsive to stimuli [Recovered/Resolved]
  - Urinary tract infection [Recovered/Resolved]
  - Dyskinesia [Recovered/Resolved]
  - Atypical pneumonia [Recovered/Resolved]
  - Respiratory failure [Recovered/Resolved]
  - Somnolence [Unknown]
  - Off label use [Unknown]

NARRATIVE: CASE EVENT DATE: 20220304
